FAERS Safety Report 20366346 (Version 1)
Quarter: 2022Q1

REPORT INFORMATION
  Report Type: Other
  Country: US (occurrence: US)
  Receive Date: 20220123
  Receipt Date: 20220123
  Transmission Date: 20220423
  Serious: No
  Sender: FDA-Public Use
  Company Number: US-BIOGEN-2019BI00763731

PATIENT
  Age: 53 Year
  Sex: Female

DRUGS (11)
  1. AMPYRA [Suspect]
     Active Substance: DALFAMPRIDINE
     Indication: Gait disturbance
     Dosage: 10 MILLIGRAM, QD
     Route: 048
     Dates: start: 20150917
  2. TECFIDERA [Suspect]
     Active Substance: DIMETHYL FUMARATE
     Indication: Multiple sclerosis
     Dosage: 240 MILLIGRAM, BID
     Route: 065
     Dates: start: 20151026, end: 20151101
  3. TECFIDERA [Suspect]
     Active Substance: DIMETHYL FUMARATE
     Dosage: MAINTENANCE DOSE
     Route: 065
     Dates: start: 20151102, end: 20170922
  4. LIORESAL [Concomitant]
     Active Substance: BACLOFEN
     Indication: Muscle spasticity
     Dosage: 10 MILLIGRAM, QD
     Route: 048
     Dates: start: 20150806
  5. CALCIUM [Concomitant]
     Active Substance: CALCIUM
     Indication: Osteoporosis
     Dosage: 1 TAB ? TABLET
     Route: 048
     Dates: start: 20140121
  6. CHOLECALCIFEROL, VITAMIN D3 [Concomitant]
     Indication: Osteoporosis
     Dosage: 1 TAB ? TABLET
     Route: 048
     Dates: start: 20140121
  7. BIOTIN [Concomitant]
     Active Substance: BIOTIN
     Indication: Dry mouth
     Dosage: 1 TAB ? TABLET
     Route: 048
     Dates: start: 20151101
  8. VITAMINS [Concomitant]
     Active Substance: VITAMINS
     Indication: Nutritional supplementation
     Dosage: 1 TAB ? TABLET
     Route: 048
     Dates: start: 20160129
  9. BONIVA [Concomitant]
     Active Substance: IBANDRONATE SODIUM
     Indication: Osteoporosis
     Dosage: 150 MILLIGRAM, QD
     Route: 048
     Dates: start: 20140421
  10. ASPIRIN [Concomitant]
     Active Substance: ASPIRIN
     Indication: Flushing
     Route: 048
     Dates: start: 20151026, end: 20180114
  11. AMANTADINE [Concomitant]
     Active Substance: AMANTADINE
     Indication: Fatigue
     Dosage: 100 MILLIGRAM
     Route: 048
     Dates: start: 20170202

REACTIONS (1)
  - Leukopenia [Recovered/Resolved]

NARRATIVE: CASE EVENT DATE: 20151125
